FAERS Safety Report 6440191-4 (Version None)
Quarter: 2009Q4

REPORT INFORMATION
  Report Type: 
  Country: None (occurrence: None)
  Receive Date: 20091113
  Receipt Date: 20090803
  Transmission Date: 20100525
  Serious: No
  Sender: FDA-Public Use
  Company Number: A0800118A

PATIENT
  Age: 69 Year
  Sex: Female

DRUGS (4)
  1. COREG [Suspect]
     Indication: HYPERTENSION
     Route: 048
     Dates: start: 20070101
  2. LIPITOR [Concomitant]
  3. DIAVAN [Concomitant]
  4. CARDIZEM [Concomitant]

REACTIONS (1)
  - DIZZINESS [None]
